FAERS Safety Report 15747120 (Version 2)
Quarter: 2019Q1

REPORT INFORMATION
  Report Type: Spontaneous
  Country: US (occurrence: US)
  Receive Date: 20181220
  Receipt Date: 20190118
  Transmission Date: 20190417
  Serious: Yes (Other)
  Sender: FDA-Public Use
  Company Number: US-PRINSTON PHARMACEUTICAL INC.-2018PRN01684

PATIENT
  Sex: Female
  Weight: 90.7 kg

DRUGS (8)
  1. NP THYROID [Concomitant]
     Active Substance: LEVOTHYROXINE\LIOTHYRONINE
     Dosage: 60 MG, 2X/DAY
  2. AMLODIPINE [Concomitant]
     Active Substance: AMLODIPINE BESYLATE
  3. UNSPECIFIED INSULIN [Concomitant]
     Active Substance: INSULIN NOS
  4. FUROSEMIDE. [Concomitant]
     Active Substance: FUROSEMIDE
  5. LOSARTAN POTASSIUM. [Suspect]
     Active Substance: LOSARTAN POTASSIUM
     Dosage: 1 TABLETS, 1X/DAY
     Route: 048
     Dates: start: 2018, end: 20181126
  6. ^NITRO^ [Concomitant]
  7. LOSARTAN POTASSIUM. [Suspect]
     Active Substance: LOSARTAN POTASSIUM
     Indication: HYPERTENSION
     Dosage: UNK
  8. METOPROLOL ER [Concomitant]
     Active Substance: METOPROLOL SUCCINATE

REACTIONS (3)
  - Actinic keratosis [Unknown]
  - Blood glucose increased [Recovered/Resolved]
  - Faeces discoloured [Not Recovered/Not Resolved]

NARRATIVE: CASE EVENT DATE: 2018
